FAERS Safety Report 6071668-1 (Version None)
Quarter: 2009Q1

REPORT INFORMATION
  Report Type: 
  Country: None (occurrence: None)
  Receive Date: 20090206
  Receipt Date: 20090206
  Transmission Date: 20090719
  Serious: Yes (Hospitalization)
  Sender: FDA-Public Use
  Company Number: None

PATIENT
  Sex: Female
  Weight: 74.8 kg

DRUGS (2)
  1. NOLVADEX [Suspect]
     Dosage: 2920 MG
     Dates: end: 20090201
  2. ACETAMINOPHEN AND HYDROCODONE BITARTRATE [Concomitant]

REACTIONS (7)
  - BACK PAIN [None]
  - FLANK PAIN [None]
  - LOWER RESPIRATORY TRACT INFLAMMATION [None]
  - MICTURITION URGENCY [None]
  - PLEURAL EFFUSION [None]
  - POLLAKIURIA [None]
  - PULMONARY EMBOLISM [None]
